FAERS Safety Report 21267292 (Version 1)
Quarter: 2022Q3

REPORT INFORMATION
  Report Type: Spontaneous
  Country: BR (occurrence: BR)
  Receive Date: 20220829
  Receipt Date: 20220829
  Transmission Date: 20221027
  Serious: Yes (Hospitalization, Other)
  Sender: FDA-Public Use
  Company Number: BR-GLAXOSMITHKLINE-BR2015GSK102625

PATIENT

DRUGS (10)
  1. BENLYSTA [Suspect]
     Active Substance: BELIMUMAB
     Indication: Systemic lupus erythematosus
     Dosage: 400 MG, Z (PER MONTH)
     Dates: start: 20150622
  2. PREDNISONE [Suspect]
     Active Substance: PREDNISONE
     Indication: Product used for unknown indication
     Dosage: 30 MG, UNK
  3. PREDNISONE [Suspect]
     Active Substance: PREDNISONE
     Dosage: 5 MG, UNK
  4. FOSFOMYCIN TROMETHAMINE [Suspect]
     Active Substance: FOSFOMYCIN TROMETHAMINE
     Indication: Product used for unknown indication
     Dosage: UNK
  5. RIVAROXABAN [Suspect]
     Active Substance: RIVAROXABAN
     Indication: Coagulopathy
     Dosage: UNK
  6. RANITIDINE [Concomitant]
     Active Substance: RANITIDINE
     Indication: Product used for unknown indication
     Dosage: 150 MG, UNK
  7. FOLIC ACID [Concomitant]
     Active Substance: FOLIC ACID
     Indication: Product used for unknown indication
     Dosage: 5 MG, UNK
  8. HYDROXYCHLOROQUINE [Concomitant]
     Active Substance: HYDROXYCHLOROQUINE
     Indication: Product used for unknown indication
     Dosage: 400 MG, UNK
  9. CALCIUM CITRATE MALATE [Concomitant]
     Active Substance: CALCIUM CITRATE MALATE
     Indication: Product used for unknown indication
     Dosage: 250 MG, UNK
  10. METHOTREXATE [Concomitant]
     Active Substance: METHOTREXATE
     Indication: Product used for unknown indication
     Dosage: 2.5 MG, UNK

REACTIONS (31)
  - COVID-19 [Recovered/Resolved]
  - Pyrexia [Recovered/Resolved]
  - Chest discomfort [Recovered/Resolved]
  - Lung disorder [Recovered/Resolved]
  - Pneumonia [Unknown]
  - Dizziness [Unknown]
  - Vomiting [Recovered/Resolved]
  - Nausea [Unknown]
  - Chills [Unknown]
  - Decreased appetite [Unknown]
  - Muscular weakness [Unknown]
  - Pain [Not Recovered/Not Resolved]
  - Weight decreased [Unknown]
  - Gastric disorder [Unknown]
  - Illness [Unknown]
  - Cough [Unknown]
  - Weight increased [Unknown]
  - Nasopharyngitis [Recovered/Resolved]
  - Urinary tract infection [Recovered/Resolved]
  - Lower respiratory tract infection [Unknown]
  - Dermatitis allergic [Not Recovered/Not Resolved]
  - Skin hypertrophy [Not Recovered/Not Resolved]
  - Sciatica [Not Recovered/Not Resolved]
  - Corrective lens user [Unknown]
  - Inappropriate schedule of product administration [Not Recovered/Not Resolved]
  - Product dose omission issue [Unknown]
  - Therapeutic response unexpected [Unknown]
  - Circumstance or information capable of leading to medication error [Not Recovered/Not Resolved]
  - Incorrect dose administered [Unknown]
  - Product availability issue [Unknown]
  - Inappropriate schedule of product administration [Unknown]

NARRATIVE: CASE EVENT DATE: 20150706
